FAERS Safety Report 5693089-3 (Version None)
Quarter: 2008Q2

REPORT INFORMATION
  Report Type: 
  Country: None (occurrence: None)
  Receive Date: 20080402
  Receipt Date: 20080402
  Transmission Date: 20081010
  Serious: Yes (Other)
  Sender: FDA-Public Use
  Company Number: None

PATIENT
  Age: 56 Year
  Sex: Female
  Weight: 73.4827 kg

DRUGS (1)
  1. SINGULAIR [Suspect]
     Indication: HYPERSENSITIVITY
     Dosage: 10 MG. 1X DAILY MOUTH
     Route: 048
     Dates: start: 20071106, end: 20080101

REACTIONS (3)
  - DEPRESSED MOOD [None]
  - DEPRESSION [None]
  - MAJOR DEPRESSION [None]
